FAERS Safety Report 7187044-4 (Version None)
Quarter: 2010Q4

REPORT INFORMATION
  Report Type: 
  Country: None (occurrence: None)
  Receive Date: 20101222
  Receipt Date: 20100824
  Transmission Date: 20110411
  Serious: Yes (Other)
  Sender: FDA-Public Use
  Company Number: US-AMGEN-TCS420711

PATIENT

DRUGS (7)
  1. ENBREL [Suspect]
     Indication: PSORIASIS
     Dosage: 50 MG, QWK
     Route: 058
     Dates: start: 20061109, end: 20100521
  2. PROTOPIC [Concomitant]
     Dosage: .1 %, QD
     Dates: start: 20090410
  3. CLOBETASOL [Concomitant]
     Dosage: UNK UNK, QD
     Dates: start: 20080519
  4. CYCLOSPORINE [Concomitant]
     Dosage: UNK UNK, QD
     Dates: start: 20060803, end: 20061010
  5. MYCOPHENOLATE MOFETIL [Concomitant]
     Dosage: UNK UNK, UNK
     Dates: start: 20061010, end: 20061110
  6. DAPSONE [Concomitant]
     Dosage: UNK UNK, UNK
     Dates: start: 20060901, end: 20061110
  7. CALCIPOTRIENE [Concomitant]
     Dosage: UNK UNK, UNK
     Dates: start: 20060803, end: 20061110

REACTIONS (3)
  - HYPOAESTHESIA [None]
  - MULTIPLE SCLEROSIS [None]
  - PARAESTHESIA [None]
